FAERS Safety Report 13865710 (Version 1)
Quarter: 2017Q3

REPORT INFORMATION
  Report Type: Spontaneous
  Country: ES (occurrence: ES)
  Receive Date: 20170814
  Receipt Date: 20170814
  Transmission Date: 20171127
  Serious: Yes (Other)
  Sender: FDA-Public Use
  Company Number: ES-TOLMAR, INC.-2012ES005514

PATIENT
  Age: 86 Year
  Sex: Male
  Weight: 62 kg

DRUGS (8)
  1. ELIGARD [Suspect]
     Active Substance: LEUPROLIDE ACETATE
     Indication: PROSTATE CANCER
     Dosage: 22.5 MG, Q3MONTHS
     Route: 058
     Dates: start: 20121205
  2. SIMVASTATINE [Concomitant]
     Active Substance: SIMVASTATIN
     Dosage: 10 MG, UNK
  3. METFORMINE [Concomitant]
     Active Substance: METFORMIN HYDROCHLORIDE
     Dosage: 850 MG, UNK
  4. OMNIC OCAS [Concomitant]
     Active Substance: TAMSULOSIN HYDROCHLORIDE
     Dosage: 0.4 MG, UNK
  5. TROMALYT [Concomitant]
     Active Substance: ASPIRIN
     Dosage: 150 MG, UNK
  6. LOGIMAX [Concomitant]
     Active Substance: FELODIPINE\METOPROLOL SUCCINATE
  7. DOXAZOSIN [Concomitant]
     Active Substance: DOXAZOSIN\DOXAZOSIN MESYLATE
     Dosage: 8 MG, UNK
  8. FUROSEMIDE. [Concomitant]
     Active Substance: FUROSEMIDE
     Dosage: 40 MG, UNK

REACTIONS (2)
  - Injection site pain [Not Recovered/Not Resolved]
  - Injection site granuloma [Not Recovered/Not Resolved]

NARRATIVE: CASE EVENT DATE: 20121205
